FAERS Safety Report 9316246 (Version 2)
Quarter: 2013Q2

REPORT INFORMATION
  Report Type: Spontaneous
  Country: DK (occurrence: None)
  Receive Date: 20130521
  Receipt Date: 20130528
  Transmission Date: 20140414
  Serious: Yes (Other)
  Sender: FDA-Public Use
  Company Number: AUR-APL-2013-04222

PATIENT
  Age: 65 Year
  Sex: Female
  Weight: 64 kg

DRUGS (3)
  1. SIMVASTATIN [Suspect]
     Indication: HYPERCHOLESTEROLAEMIA
     Route: 048
  2. ROACTEMRA [Suspect]
     Indication: RHEUMATOID ARTHRITIS
     Dosage: 0.2857 MG/KG (8 MG/KG,1 IN 4 WK),INTRAVENOUS
     Route: 042
     Dates: start: 20101027, end: 20130416
  3. METHOTREXATE [Suspect]
     Indication: RHEUMATOID ARTHRITIS
     Dosage: 1 IN 1 MO
     Route: 048
     Dates: start: 20101007

REACTIONS (4)
  - Abdominal discomfort [None]
  - Diverticulum [None]
  - Gastrointestinal inflammation [None]
  - Haemorrhage [None]
